FAERS Safety Report 23790379 (Version 2)
Quarter: 2024Q2

REPORT INFORMATION
  Report Type: Spontaneous
  Country: US (occurrence: US)
  Receive Date: 20240427
  Receipt Date: 20240502
  Transmission Date: 20240716
  Serious: No
  Sender: FDA-Public Use
  Company Number: US-TEVA-VS-3167066

PATIENT
  Age: 67 Year
  Sex: Female

DRUGS (1)
  1. CLOTRIMAZOLE AND BETAMETHASONE DIPROPIONATE [Suspect]
     Active Substance: BETAMETHASONE\BETAMETHASONE DIPROPIONATE\CLOTRIMAZOLE
     Indication: Rash papular
     Dosage: 1-0.05%
     Route: 065

REACTIONS (5)
  - Therapeutic product effect decreased [Unknown]
  - Off label use [Unknown]
  - Pruritus [Unknown]
  - Product use issue [Unknown]
  - Off label use [Unknown]
